FAERS Safety Report 18114822 (Version 2)
Quarter: 2020Q4

REPORT INFORMATION
  Report Type: Spontaneous
  Country: ES (occurrence: ES)
  Receive Date: 20200805
  Receipt Date: 20201007
  Transmission Date: 20210113
  Serious: Yes (Other)
  Sender: FDA-Public Use
  Company Number: ES-UCBSA-2020030241

PATIENT
  Age: 72 Year
  Sex: Male

DRUGS (5)
  1. SINEMET [Suspect]
     Active Substance: CARBIDOPA\LEVODOPA
     Indication: PARKINSON^S DISEASE
     Dosage: UNKNOWN
  2. XADAGO [Suspect]
     Active Substance: SAFINAMIDE MESYLATE
     Indication: PARKINSON^S DISEASE
     Dosage: UNKNOWN
  3. NEUPRO [Suspect]
     Active Substance: ROTIGOTINE
     Indication: PARKINSON^S DISEASE
     Dosage: UNKNOWN
  4. LEVODOPA [Suspect]
     Active Substance: LEVODOPA
     Indication: PARKINSON^S DISEASE
     Dosage: 400 (NO UNIT PROVIDED), UNKNOWN
  5. ONGENTYS [Suspect]
     Active Substance: OPICAPONE
     Indication: PARKINSON^S DISEASE
     Dosage: UNKNOWN

REACTIONS (13)
  - Bradykinesia [Unknown]
  - Constipation [Unknown]
  - Sleep disorder [Unknown]
  - Delusion [Unknown]
  - Tremor [Unknown]
  - Depression [Unknown]
  - Dystonia [Unknown]
  - Fatigue [Unknown]
  - Therapeutic response shortened [Unknown]
  - Hallucination [Unknown]
  - Anosmia [Unknown]
  - Anxiety [Unknown]
  - Muscle rigidity [Unknown]
